FAERS Safety Report 8662534 (Version 2)
Quarter: 2012Q4

REPORT INFORMATION
  Report Type: 
  Country: US (occurrence: US)
  Receive Date: 20120712
  Receipt Date: 20120925
  Transmission Date: 20130627
  Serious: Yes (Hospitalization)
  Sender: FDA-Public Use
  Company Number: US-ENDO PHARMACEUTICALS INC.-HCDA20120050

PATIENT
  Age: 49 None
  Sex: Female

DRUGS (5)
  1. ACETAMINOPHEN\HYDROCODONE BITARTRATE [Suspect]
     Indication: BACK INJURY
     Dosage: 7.5MG/500MG
     Route: 048
     Dates: start: 20120125, end: 201206
  2. ACETAMINOPHEN\HYDROCODONE BITARTRATE [Suspect]
     Indication: ROAD TRAFFIC ACCIDENT
     Dosage: 7.5MG/500MG
     Route: 048
     Dates: start: 201206, end: 2012
  3. ACETAMINOPHEN\HYDROCODONE BITARTRATE [Suspect]
     Indication: PAIN
     Dosage: 7.5MG/500MG
     Route: 048
     Dates: start: 2012, end: 20120823
  4. ACETAMINOPHEN\HYDROCODONE BITARTRATE [Suspect]
     Dosage: 7.5MG/500MG
     Route: 048
  5. FENTANYL [Concomitant]
     Indication: PAIN
     Route: 062
     Dates: start: 20120116

REACTIONS (3)
  - Fall [Recovering/Resolving]
  - Femoral neck fracture [Recovering/Resolving]
  - Vertigo [Unknown]
